FAERS Safety Report 7379228-7 (Version None)
Quarter: 2011Q1

REPORT INFORMATION
  Report Type: 
  Country: None (occurrence: None)
  Receive Date: 20110328
  Receipt Date: 20110321
  Transmission Date: 20110831
  Serious: Yes (Death, Hospitalization)
  Sender: FDA-Public Use
  Company Number: HU-ELI_LILLY_AND_COMPANY-HU201102002806

PATIENT
  Sex: Male
  Weight: 51 kg

DRUGS (5)
  1. NECITUMUMAB (11F8) (LY3012211) [Suspect]
     Indication: NON-SMALL CELL LUNG CANCER
     Dosage: 800 MG, UNK
     Dates: start: 20101216, end: 20101216
  2. GEMCITABINE HYDROCHLORIDE [Suspect]
     Indication: NON-SMALL CELL LUNG CANCER
     Dosage: 2000 MG, UNK
     Dates: start: 20101216, end: 20101216
  3. CISPLATIN [Suspect]
     Indication: NON-SMALL CELL LUNG CANCER
     Dosage: 120 MG, UNK
     Dates: start: 20101216, end: 20101216
  4. CERUCAL [Concomitant]
  5. VITAMIN B6 [Concomitant]

REACTIONS (2)
  - VOMITING [None]
  - CACHEXIA [None]
